FAERS Safety Report 20263070 (Version 4)
Quarter: 2022Q1

REPORT INFORMATION
  Report Type: Spontaneous
  Country: CA (occurrence: CA)
  Receive Date: 20211231
  Receipt Date: 20220304
  Transmission Date: 20220423
  Serious: Yes (Hospitalization)
  Sender: FDA-Public Use
  Company Number: CA-CELLTRION INC.-2021CA017833

PATIENT

DRUGS (3)
  1. INFLECTRA [Suspect]
     Active Substance: INFLIXIMAB-DYYB
     Indication: Crohn^s disease
     Dosage: 10MG/KG AT 0, 2, 6, WEEKS THEN EVERY 8 WEEKS
     Route: 042
     Dates: start: 20211125, end: 202112
  2. INFLECTRA [Suspect]
     Active Substance: INFLIXIMAB-DYYB
     Dosage: 10MG/KG AT 0, 2, 6, WEEKS THEN EVERY 8 WEEKS
     Dates: start: 2021, end: 2021
  3. INFLECTRA [Suspect]
     Active Substance: INFLIXIMAB-DYYB
     Dosage: 10MG/KG AT 0, 2, 6, WEEKS THEN EVERY 8 WEEKS
     Route: 042
     Dates: start: 20211206

REACTIONS (4)
  - Gastrointestinal disorder [Unknown]
  - Gastrointestinal disorder [Unknown]
  - Drug ineffective [Unknown]
  - Off label use [Unknown]

NARRATIVE: CASE EVENT DATE: 20210101
